FAERS Safety Report 22195335 (Version 3)
Quarter: 2023Q2

REPORT INFORMATION
  Report Type: Spontaneous
  Country: DE (occurrence: DE)
  Receive Date: 20230411
  Receipt Date: 20230424
  Transmission Date: 20230722
  Serious: Yes (Other)
  Sender: FDA-Public Use
  Company Number: DE-DAIICHI SANKYO EUROPE GMBH-DSE-2023-112850

PATIENT
  Age: 79 Year
  Sex: Male
  Weight: 65 kg

DRUGS (4)
  1. BEMPEDOIC ACID [Interacting]
     Active Substance: BEMPEDOIC ACID
     Indication: Blood cholesterol increased
     Dosage: 180 MG, QD
     Route: 065
     Dates: start: 202302
  2. BEMPEDOIC ACID [Interacting]
     Active Substance: BEMPEDOIC ACID
     Dosage: 180 MG
     Route: 065
     Dates: start: 2023
  3. MARCUMAR [Interacting]
     Active Substance: PHENPROCOUMON
     Indication: Heart valve replacement
     Dosage: UNK
     Route: 065
     Dates: start: 2021
  4. MARCUMAR [Interacting]
     Active Substance: PHENPROCOUMON
     Indication: Aneurysm

REACTIONS (6)
  - International normalised ratio increased [Recovered/Resolved]
  - Tongue haemorrhage [Unknown]
  - Tongue biting [Unknown]
  - Haemorrhagic diathesis [Recovering/Resolving]
  - Drug interaction [Unknown]
  - Therapy cessation [Recovered/Resolved]

NARRATIVE: CASE EVENT DATE: 20230101
